FAERS Safety Report 16321425 (Version 1)
Quarter: 2019Q2

REPORT INFORMATION
  Report Type: Spontaneous
  Country: US (occurrence: US)
  Receive Date: 20190516
  Receipt Date: 20190516
  Transmission Date: 20190711
  Serious: Yes (Other)
  Sender: FDA-Public Use
  Company Number: US-TEVA-2019-US-1049615

PATIENT
  Age: 64 Year
  Sex: Male

DRUGS (1)
  1. PALIPERIDONE. [Suspect]
     Active Substance: PALIPERIDONE
     Indication: SCHIZOAFFECTIVE DISORDER
     Dosage: LONG ACTING; FIRST LOADING DOSE ON DAY 10 OF HOSPITALISATION
     Route: 065

REACTIONS (2)
  - Urticaria [Recovered/Resolved]
  - Erythema multiforme [Recovered/Resolved]
